FAERS Safety Report 4368987-3 (Version None)
Quarter: 2004Q2

REPORT INFORMATION
  Report Type: 
  Country: None (occurrence: None)
  Receive Date: 20040603
  Receipt Date: 20040525
  Transmission Date: 20050107
  Serious: Yes (Other)
  Sender: FDA-Public Use
  Company Number: PHBS2004ES06879

PATIENT
  Age: 47 Year
  Sex: Male

DRUGS (1)
  1. TRILEPTAL [Suspect]
     Indication: AFFECT LABILITY
     Dosage: 1200 MG, UNK
     Route: 048
     Dates: start: 20040403

REACTIONS (1)
  - URINARY RETENTION [None]
